FAERS Safety Report 9423734 (Version 2)
Quarter: 2013Q3

REPORT INFORMATION
  Report Type: Report from Study
  Country: AU (occurrence: AU)
  Receive Date: 20130728
  Receipt Date: 20130806
  Transmission Date: 20140515
  Serious: Yes (Disabling, Other)
  Sender: FDA-Public Use
  Company Number: PHHY2013AU079870

PATIENT
  Sex: Female

DRUGS (8)
  1. ACLASTA [Suspect]
     Indication: OSTEOPOROSIS
     Dosage: 5 MG, UNK
     Route: 042
     Dates: start: 20110606
  2. ACLASTA [Suspect]
     Dosage: 5 MG, UNK
     Route: 042
     Dates: start: 20120626
  3. ZOCOR [Concomitant]
     Dosage: UNK UKN, UNK
     Route: 048
  4. ASTRIX [Concomitant]
     Dosage: UNK UKN, UNK
     Route: 048
  5. BETALIX [Concomitant]
     Dosage: UNK UKN, UNK
  6. COVERSYL [Concomitant]
     Dosage: UNK UKN, UNK
  7. MICARDIS [Concomitant]
     Dosage: UNK UKN, UNK
  8. ACE INHIBITORS [Concomitant]
     Dosage: UNK UKN, UNK

REACTIONS (4)
  - Renal failure chronic [Not Recovered/Not Resolved]
  - Blood creatinine increased [Unknown]
  - Dehydration [Unknown]
  - Lethargy [Unknown]
